FAERS Safety Report 5706737-6 (Version None)
Quarter: 2008Q2

REPORT INFORMATION
  Report Type: 
  Country: None (occurrence: None)
  Receive Date: 20080416
  Receipt Date: 20080409
  Transmission Date: 20081010
  Serious: Yes (Hospitalization)
  Sender: FDA-Public Use
  Company Number: US-BAYER-200810080NA

PATIENT
  Age: 39 Year
  Sex: Female

DRUGS (2)
  1. MIRENA [Suspect]
     Indication: CONTRACEPTION
     Route: 015
     Dates: start: 20061020, end: 20071213
  2. MULTI-VITAMIN [Concomitant]

REACTIONS (2)
  - ANTEPARTUM HAEMORRHAGE [None]
  - ECTOPIC PREGNANCY WITH INTRAUTERINE DEVICE [None]
